FAERS Safety Report 7424328-6 (Version None)
Quarter: 2011Q2

REPORT INFORMATION
  Report Type: 
  Country: None (occurrence: None)
  Receive Date: 20110411
  Receipt Date: 20110329
  Transmission Date: 20111010
  Serious: Yes (Disabling, Other)
  Sender: FDA-Public Use
  Company Number: ACO_21914_2011

PATIENT
  Age: 68 Year
  Sex: Female
  Weight: 72.6 kg

DRUGS (23)
  1. AMPYRA [Suspect]
     Indication: BALANCE DISORDER
     Dosage: 10 MG, BID, ORAL
     Route: 048
     Dates: start: 20110309, end: 20110320
  2. AMPYRA [Suspect]
     Indication: GAIT DISTURBANCE
     Dosage: 10 MG, BID, ORAL
     Route: 048
     Dates: start: 20110309, end: 20110320
  3. AMPYRA [Suspect]
     Indication: BALANCE DISORDER
     Dosage: 10 MG, BID, ORAL
     Route: 048
     Dates: start: 20110306, end: 20110308
  4. AMPYRA [Suspect]
     Indication: GAIT DISTURBANCE
     Dosage: 10 MG, BID, ORAL
     Route: 048
     Dates: start: 20110306, end: 20110308
  5. PROBIOTIC (LACTOBACILLUS ACIDOPHILUS, LACTOBAILLUS BIFIDUS) [Concomitant]
  6. METHYLIN (METHYLPHENIDATE HYDROCHLORIDE) [Concomitant]
  7. CALCIUM (CALCIUM) [Concomitant]
  8. PEPCID [Concomitant]
  9. CITRUCEL (METHYLCELLULOSE) [Concomitant]
  10. CORTISONE (CORTISONE) [Concomitant]
  11. TERAZOSIN HCL [Concomitant]
  12. GLUCOSAMINE (GLUCOSAMINE) [Concomitant]
  13. IBUPROFEN [Concomitant]
  14. PAXIL [Concomitant]
  15. VITAMIN D [Concomitant]
  16. MULTIVITAMIN (VITAMIN NOS) [Concomitant]
  17. SYNVISC (IHYALURONATE SODIUM) [Concomitant]
  18. RITALIN [Concomitant]
  19. AMOXICILLIN [Concomitant]
  20. MIRALAX [Concomitant]
  21. NEURONTIN [Concomitant]
  22. MINERAL TAB [Concomitant]
  23. AMITRIPTYLINE (AMITRIPTYLINE) [Concomitant]

REACTIONS (12)
  - ASTHENIA [None]
  - DIZZINESS [None]
  - INSOMNIA [None]
  - BALANCE DISORDER [None]
  - GAIT DISTURBANCE [None]
  - PERONEAL NERVE PALSY [None]
  - ABASIA [None]
  - TENDERNESS [None]
  - INAPPROPRIATE SCHEDULE OF DRUG ADMINISTRATION [None]
  - FEELING ABNORMAL [None]
  - NECK PAIN [None]
  - NAUSEA [None]
